FAERS Safety Report 7988104-8 (Version None)
Quarter: 2011Q4

REPORT INFORMATION
  Report Type: 
  Country: None (occurrence: None)
  Receive Date: 20111216
  Receipt Date: 20110603
  Transmission Date: 20120403
  Serious: No
  Sender: FDA-Public Use
  Company Number: US-BRISTOL-MYERS SQUIBB COMPANY-15805302

PATIENT
  Age: 22 Year
  Sex: Female

DRUGS (3)
  1. ZYRTEC [Suspect]
  2. ABILIFY [Suspect]
     Dates: start: 20110530, end: 20110603
  3. CELEXA [Suspect]

REACTIONS (2)
  - FATIGUE [None]
  - SOMNOLENCE [None]
